FAERS Safety Report 23739392 (Version 1)
Quarter: 2024Q2

REPORT INFORMATION
  Report Type: Spontaneous
  Country: US (occurrence: US)
  Receive Date: 20240413
  Receipt Date: 20240413
  Transmission Date: 20240716
  Serious: No
  Sender: FDA-Public Use
  Company Number: US-SA-2024SA107035

PATIENT
  Age: 4 Year
  Sex: Female

DRUGS (1)
  1. DUPIXENT [Suspect]
     Active Substance: DUPILUMAB
     Indication: Asthma
     Dosage: 300 MG, Q4W
     Route: 058
     Dates: start: 202311

REACTIONS (5)
  - Pain [Unknown]
  - Paraesthesia [Unknown]
  - Urticaria aquagenic [Unknown]
  - Photosensitivity reaction [Unknown]
  - Rash [Unknown]
